FAERS Safety Report 24922847 (Version 2)
Quarter: 2025Q2

REPORT INFORMATION
  Report Type: Spontaneous
  Country: IT (occurrence: IT)
  Receive Date: 20250204
  Receipt Date: 20250404
  Transmission Date: 20250716
  Serious: Yes (Hospitalization)
  Sender: CIPLA
  Company Number: IT-MINISAL02-1022153

PATIENT

DRUGS (4)
  1. RIVAROXABAN [Suspect]
     Active Substance: RIVAROXABAN
     Indication: Cerebrovascular accident
     Dosage: 20 MILLIGRAM, QD
     Route: 048
  2. METOPROLOL FUMARATE [Concomitant]
     Active Substance: METOPROLOL FUMARATE
     Indication: Hypertension
     Dosage: 100 MILLIGRAM, UNK
     Route: 048
  3. FLECAINIDE [Concomitant]
     Active Substance: FLECAINIDE
     Indication: Atrial fibrillation
     Dosage: 200 MILLIGRAM, QD
     Route: 048
  4. AMLODIPINE BESYLATE [Concomitant]
     Active Substance: AMLODIPINE BESYLATE
     Indication: Hypertension
     Dosage: 5 MILLIGRAM, UNK
     Route: 048

REACTIONS (2)
  - Dysuria [Recovering/Resolving]
  - Haematuria [Recovering/Resolving]

NARRATIVE: CASE EVENT DATE: 20241224
